FAERS Safety Report 21236819 (Version 3)
Quarter: 2022Q4

REPORT INFORMATION
  Report Type: Spontaneous
  Country: US (occurrence: US)
  Receive Date: 20220822
  Receipt Date: 20221115
  Transmission Date: 20230113
  Serious: No
  Sender: FDA-Public Use
  Company Number: US-BRISTOL-MYERS SQUIBB COMPANY-2022-093198

PATIENT
  Age: 89 Year
  Sex: Female

DRUGS (1)
  1. REVLIMID [Suspect]
     Active Substance: LENALIDOMIDE
     Indication: Product used for unknown indication
     Dosage: FREQ: DAILY
     Route: 048
     Dates: start: 20220801

REACTIONS (6)
  - Fatigue [Unknown]
  - Diarrhoea [Not Recovered/Not Resolved]
  - Feeling cold [Unknown]
  - Ageusia [Not Recovered/Not Resolved]
  - COVID-19 [Unknown]
  - Alopecia [Unknown]

NARRATIVE: CASE EVENT DATE: 20220801
